FAERS Safety Report 8200970-X (Version None)
Quarter: 2012Q1

REPORT INFORMATION
  Report Type: 
  Country: None (occurrence: None)
  Receive Date: 20120312
  Receipt Date: 20120228
  Transmission Date: 20120608
  Serious: Yes (Death, Other)
  Sender: FDA-Public Use
  Company Number: JP-MEDIMMUNE-MEDI-0014741

PATIENT
  Sex: Female
  Weight: 2.69 kg

DRUGS (10)
  1. SYNAGIS [Suspect]
     Indication: FUNDOSCOPY
  2. AMBROXOL HYDROCHLORIDE [Concomitant]
     Dates: start: 20100908, end: 20101103
  3. PROCATEROL HCL [Concomitant]
     Route: 048
     Dates: start: 20101106
  4. MYDRIN P [Suspect]
     Dates: start: 20101202
  5. L-CARBOCISTEINE [Concomitant]
     Route: 048
     Dates: start: 20100908, end: 20101103
  6. ERYTHROMYCIN STEARATE [Concomitant]
     Route: 048
     Dates: start: 20101104, end: 20101124
  7. ANTIBIOTIC-RESISTANT LACTIC ACID BACTERIAE [Concomitant]
     Route: 048
     Dates: start: 20101106, end: 20101116
  8. PRANLUKAST HYDRATE [Concomitant]
     Route: 048
     Dates: start: 20101104, end: 20101117
  9. CEFDITOREN PIVOXIL [Concomitant]
     Route: 048
     Dates: start: 20100915
  10. SYNAGIS [Suspect]
     Route: 030
     Dates: start: 20100908, end: 20101202

REACTIONS (11)
  - WHEEZING [None]
  - RESPIRATORY ARREST [None]
  - PNEUMONIA PNEUMOCOCCAL [None]
  - INCREASED UPPER AIRWAY SECRETION [None]
  - OBSTRUCTIVE AIRWAYS DISORDER [None]
  - WEIGHT DECREASED [None]
  - PYREXIA [None]
  - ASPIRATION [None]
  - RIB FRACTURE [None]
  - GENERAL PHYSICAL HEALTH DETERIORATION [None]
  - CARDIO-RESPIRATORY ARREST [None]
